FAERS Safety Report 4680624-7 (Version None)
Quarter: 2005Q2

REPORT INFORMATION
  Report Type: 
  Country: None (occurrence: None)
  Receive Date: 20050601
  Receipt Date: 20040921
  Transmission Date: 20051028
  Serious: Yes (Other)
  Sender: FDA-Public Use
  Company Number: CEL-2004-01783-ROC

PATIENT
  Sex: Male

DRUGS (1)
  1. METADATE CD [Suspect]
     Dosage: 40 MG INCREASED TO 60MG, FREQUENCY AND ROUTE UNKNOWN

REACTIONS (1)
  - GROWTH RETARDATION [None]
